FAERS Safety Report 24367896 (Version 1)
Quarter: 2024Q3

REPORT INFORMATION
  Report Type: Spontaneous
  Country: FI (occurrence: FI)
  Receive Date: 20240926
  Receipt Date: 20240926
  Transmission Date: 20241017
  Serious: Yes (Other)
  Sender: GLAXOSMITHKLINE
  Company Number: None

PATIENT

DRUGS (1)
  1. BUPROPION HYDROCHLORIDE [Suspect]
     Active Substance: BUPROPION HYDROCHLORIDE
     Indication: Depression
     Dosage: 300 MG, QD (2 TABLETS A DAY)
     Route: 048
     Dates: start: 20240913

REACTIONS (9)
  - Self-injurious ideation [Recovering/Resolving]
  - Fear [Recovering/Resolving]
  - Palpitations [Recovering/Resolving]
  - Anxiety [Recovering/Resolving]
  - Insomnia [Recovering/Resolving]
  - Abnormal dreams [Recovering/Resolving]
  - Panic attack [Recovering/Resolving]
  - Irritability [Recovering/Resolving]
  - Derealisation [Recovering/Resolving]

NARRATIVE: CASE EVENT DATE: 20240914
